FAERS Safety Report 8611850-X (Version None)
Quarter: 2012Q3

REPORT INFORMATION
  Report Type: 
  Country: None (occurrence: None)
  Receive Date: 20120809
  Receipt Date: 20120725
  Transmission Date: 20120928
  Serious: Yes (Hospitalization)
  Sender: FDA-Public Use
  Company Number: 1357449

PATIENT
  Sex: Female
  Weight: 64 kg

DRUGS (18)
  1. GEMCITABINE HYDROCHLORIDE [Suspect]
     Indication: PANCREATIC CARCINOMA
     Dosage: SEE IMAGE
     Route: 041
     Dates: start: 20120402
  2. GEMCITABINE HYDROCHLORIDE [Suspect]
     Indication: PANCREATIC CARCINOMA
     Dosage: SEE IMAGE
     Route: 041
     Dates: start: 20120524
  3. GEMCITABINE HYDROCHLORIDE [Suspect]
     Indication: PANCREATIC CARCINOMA
     Dosage: SEE IMAGE
     Route: 041
     Dates: start: 20120705
  4. GEMCITABINE HYDROCHLORIDE [Suspect]
     Indication: PANCREATIC CARCINOMA
     Dosage: SEE IMAGE
     Route: 041
     Dates: start: 20120416
  5. GEMCITABINE HYDROCHLORIDE [Suspect]
     Indication: PANCREATIC CARCINOMA
     Dosage: SEE IMAGE
     Route: 041
     Dates: start: 20120307
  6. GEMCITABINE HYDROCHLORIDE [Suspect]
     Indication: PANCREATIC CARCINOMA
     Dosage: SEE IMAGE
     Route: 041
     Dates: start: 20120614
  7. SOLU-MEDROL [Concomitant]
  8. SODIUM CHLORIDE [Concomitant]
  9. EMESET [Concomitant]
  10. CARBOPLATIN [Suspect]
     Indication: PANCREATIC CARCINOMA
     Dosage: 300 MG, DILUTE WITH NORMAL SALINE SOLUTION,  SLOW INFUSION IN FIRST 5 MINUTES, INTRAVENOUS DRIP
     Route: 042
     Dates: start: 20120307, end: 20120402
  11. GLUCOSE [Concomitant]
  12. PRIMPERAN TAB [Concomitant]
  13. OXALIPLATIN [Suspect]
     Indication: PANCREATIC CARCINOMA
     Dosage: SEE IMAGE
     Route: 041
     Dates: start: 20120705
  14. OXALIPLATIN [Suspect]
     Indication: PANCREATIC CARCINOMA
     Dosage: SEE IMAGE
     Route: 041
     Dates: start: 20120503
  15. OXALIPLATIN [Suspect]
     Indication: PANCREATIC CARCINOMA
     Dosage: SEE IMAGE
     Route: 041
     Dates: start: 20120614
  16. OXALIPLATIN [Suspect]
     Indication: PANCREATIC CARCINOMA
     Dosage: SEE IMAGE
     Route: 041
     Dates: start: 20120402
  17. OXALIPLATIN [Suspect]
     Indication: PANCREATIC CARCINOMA
     Dosage: SEE IMAGE
     Route: 041
     Dates: start: 20120416
  18. OXALIPLATIN [Suspect]
     Indication: PANCREATIC CARCINOMA
     Dosage: SEE IMAGE
     Route: 041
     Dates: start: 20120524

REACTIONS (12)
  - INFUSION RELATED REACTION [None]
  - HYPERHIDROSIS [None]
  - BLOOD PRESSURE INCREASED [None]
  - VOMITING [None]
  - FATIGUE [None]
  - DYSPNOEA [None]
  - ERYTHEMA [None]
  - BLOOD PRESSURE IMMEASURABLE [None]
  - ANAPHYLACTIC SHOCK [None]
  - ALOPECIA [None]
  - HEART RATE INCREASED [None]
  - PULSE PRESSURE DECREASED [None]
